FAERS Safety Report 4345666-X (Version None)
Quarter: 2004Q2

REPORT INFORMATION
  Report Type: 
  Country: None (occurrence: None)
  Receive Date: 20040421
  Receipt Date: 20040412
  Transmission Date: 20050107
  Serious: Yes (Disabling)
  Sender: FDA-Public Use
  Company Number: HQ4915629OCT2002

PATIENT
  Age: 21 Year
  Sex: Female

DRUGS (4)
  1. DIMETAPP [Suspect]
     Dosage: ORAL
     Route: 048
  2. NYQUIL (DEXTROMETHORPHAN HYDROBROMIDE/DOXYLAMINE SUCCINATE/EPHEDRINE S [Suspect]
  3. ROBITUSSIN CF (GUAIFENESIN/DEXTROMETHORPHAN/PHENYLPROPANOLAMINE, SYRUP [Suspect]
     Indication: NASOPHARYNGITIS
     Dates: start: 20010325, end: 20010329
  4. ROBITUSSIN DM (GUAIFENESIN/DEXTROMETHORPHAN, SYRUP) [Suspect]

REACTIONS (1)
  - HAEMORRHAGIC STROKE [None]
